FAERS Safety Report 13770253 (Version 2)
Quarter: 2017Q3

REPORT INFORMATION
  Report Type: Report from Study
  Country: PL (occurrence: PL)
  Receive Date: 20170719
  Receipt Date: 20170727
  Transmission Date: 20171127
  Serious: Yes (Hospitalization)
  Sender: FDA-Public Use
  Company Number: PL-TAKEDA-2017TUS014866

PATIENT
  Age: 35 Year
  Sex: Female
  Weight: 69.8 kg

DRUGS (4)
  1. GESTODENUM [Concomitant]
     Indication: CONTRACEPTION
     Dosage: 0.075 MG, QD
     Route: 048
  2. VEDOLIZUMAB [Suspect]
     Active Substance: VEDOLIZUMAB
     Indication: COLITIS ULCERATIVE
     Dosage: UNK
     Route: 065
     Dates: start: 20161018
  3. ETHINYLESTRADIOLUM [Concomitant]
     Indication: CONTRACEPTION
     Dosage: 0.03 MG, QD
     Route: 048
  4. MESALAZINUM [Concomitant]
     Active Substance: MESALAMINE
     Indication: COLITIS ULCERATIVE
     Dosage: 1 G, QID
     Route: 048
     Dates: start: 201607

REACTIONS (1)
  - Thrombophlebitis superficial [Recovered/Resolved]

NARRATIVE: CASE EVENT DATE: 20170613
